FAERS Safety Report 17752950 (Version 1)
Quarter: 2020Q2

REPORT INFORMATION
  Report Type: Spontaneous
  Country: DE (occurrence: DE)
  Receive Date: 20200506
  Receipt Date: 20200506
  Transmission Date: 20200714
  Serious: Yes (Other)
  Sender: FDA-Public Use
  Company Number: DE-MYLANLABS-2020M1045231

PATIENT
  Sex: Female

DRUGS (1)
  1. VALSARTAN MYLAN 80MG FILM-COATED TABLETS [Suspect]
     Active Substance: VALSARTAN
     Indication: PRODUCT USED FOR UNKNOWN INDICATION
     Dosage: 80 MILLIGRAM, BID
     Dates: start: 2012

REACTIONS (3)
  - Mental impairment [Not Recovered/Not Resolved]
  - Quality of life decreased [Not Recovered/Not Resolved]
  - Fear of disease [Not Recovered/Not Resolved]
